FAERS Safety Report 10129095 (Version 1)
Quarter: 2014Q2

REPORT INFORMATION
  Report Type: Spontaneous
  Country: FR (occurrence: FR)
  Receive Date: 20140428
  Receipt Date: 20140428
  Transmission Date: 20141212
  Serious: Yes (Hospitalization)
  Sender: FDA-Public Use
  Company Number: FR-BAYER-2014-059297

PATIENT
  Age: 71 Year
  Sex: Female

DRUGS (2)
  1. STIVARGA [Suspect]
     Dosage: 40 MG, UNK
     Route: 048
     Dates: start: 20131209, end: 20131229
  2. AVASTIN [Suspect]
     Dosage: 25MG/ML, UNK
     Route: 042
     Dates: start: 201104, end: 201111

REACTIONS (1)
  - Aortic dissection [Not Recovered/Not Resolved]
